FAERS Safety Report 4657361-8 (Version None)
Quarter: 2005Q2

REPORT INFORMATION
  Report Type: 
  Country: None (occurrence: None)
  Receive Date: 20050331
  Receipt Date: 20050106
  Transmission Date: 20051028
  Serious: No
  Sender: FDA-Public Use
  Company Number: US106249

PATIENT
  Age: 71 Year
  Sex: Female

DRUGS (4)
  1. NEULASTA [Suspect]
     Indication: CHEMOTHERAPY
     Dosage: 6 MG
     Dates: start: 20031105
  2. PACLITAXEL [Concomitant]
  3. CYCLOPHOSPHAMIDE [Concomitant]
  4. DOXORUBICIN HYDROCHLORIDE [Concomitant]

REACTIONS (5)
  - ASTHENIA [None]
  - BONE PAIN [None]
  - BRONCHITIS [None]
  - INFLUENZA LIKE ILLNESS [None]
  - PYREXIA [None]
